FAERS Safety Report 5107387-5 (Version None)
Quarter: 2006Q3

REPORT INFORMATION
  Report Type: 
  Country: None (occurrence: None)
  Receive Date: 20060914
  Receipt Date: 20060825
  Transmission Date: 20061208
  Serious: Yes (Death, Other)
  Sender: FDA-Public Use
  Company Number: C-06-0047

PATIENT
  Age: 4 Month
  Sex: Female

DRUGS (1)
  1. NYSTATIN [Suspect]
     Indication: ORAL CANDIDIASIS
     Dosage: 1 DROPPER 4X/DAY ORALLY
     Route: 048
     Dates: start: 20060821, end: 20060824

REACTIONS (6)
  - DRUG INEFFECTIVE [None]
  - FEEDING DISORDER NEONATAL [None]
  - ORAL CANDIDIASIS [None]
  - PATHOGEN RESISTANCE [None]
  - PHARMACEUTICAL PRODUCT COMPLAINT [None]
  - VOMITING [None]
